FAERS Safety Report 6544322-7 (Version None)
Quarter: 2010Q1

REPORT INFORMATION
  Report Type: 
  Country: None (occurrence: None)
  Receive Date: 20100120
  Receipt Date: 20100120
  Transmission Date: 20100710
  Serious: Yes (Other)
  Sender: FDA-Public Use
  Company Number: None

PATIENT
  Age: 66 Year
  Sex: Male
  Weight: 75.7507 kg

DRUGS (1)
  1. SIMVASTATIN [Suspect]
     Indication: BLOOD CHOLESTEROL INCREASED
     Dosage: 1 DAILY PO
     Route: 048
     Dates: start: 20070401, end: 20091001

REACTIONS (5)
  - ANAL SPHINCTER ATONY [None]
  - ASTHENIA [None]
  - DIARRHOEA [None]
  - FLATULENCE [None]
  - MYALGIA [None]
